FAERS Safety Report 6779886-1 (Version None)
Quarter: 2010Q2

REPORT INFORMATION
  Report Type: 
  Country: None (occurrence: None)
  Receive Date: 20100618
  Receipt Date: 20100607
  Transmission Date: 20101027
  Serious: Yes (Other)
  Sender: FDA-Public Use
  Company Number: DE-PFIZER INC-2010069523

PATIENT
  Age: 85 Year
  Sex: Female

DRUGS (5)
  1. LYRICA [Suspect]
     Indication: NEURALGIA
     Dosage: 25 MG DAILY
     Route: 048
  2. LYRICA [Suspect]
     Dosage: 25 MG, 3X/DAY
     Route: 048
  3. LYRICA [Suspect]
     Dosage: 125 MG DAILY, UNK
  4. LYRICA [Suspect]
     Dosage: 75 MG, 2X/DAY
  5. LYRICA [Suspect]
     Dosage: UNK

REACTIONS (1)
  - TREMOR [None]
